FAERS Safety Report 25971311 (Version 2)
Quarter: 2025Q4

REPORT INFORMATION
  Report Type: Spontaneous
  Country: EU (occurrence: EU)
  Receive Date: 20251028
  Receipt Date: 20251119
  Transmission Date: 20260118
  Serious: Yes (Other)
  Sender: NOVARTIS
  Company Number: EU-002147023-NVSC2025SK158106

PATIENT
  Age: 28 Year
  Sex: Male

DRUGS (23)
  1. TRILEPTAL [Suspect]
     Active Substance: OXCARBAZEPINE
     Indication: Epilepsy
     Dosage: 300 MG, BID (1-0-1)
     Route: 048
     Dates: start: 202303
  2. TRILEPTAL [Suspect]
     Active Substance: OXCARBAZEPINE
     Dosage: 300 MG, BID (1-0-2)
     Route: 048
     Dates: start: 202304
  3. TRILEPTAL [Suspect]
     Active Substance: OXCARBAZEPINE
     Dosage: 300 MG, BID (2-0-2)
     Route: 048
     Dates: start: 202305
  4. TRILEPTAL [Suspect]
     Active Substance: OXCARBAZEPINE
     Dosage: 300 MG (1800 MG/DAY)
     Route: 048
     Dates: end: 20230612
  5. TRILEPTAL [Suspect]
     Active Substance: OXCARBAZEPINE
     Dosage: 300 MG
     Route: 048
     Dates: end: 20230905
  6. VALPROATE [Concomitant]
     Active Substance: VALPROIC ACID
     Indication: Epilepsy
     Dosage: UNK
     Route: 065
  7. VALPROATE [Concomitant]
     Active Substance: VALPROIC ACID
     Dosage: 500 MG (2-0-2)
     Route: 065
     Dates: start: 202302
  8. LEVETIRACETAM [Concomitant]
     Active Substance: LEVETIRACETAM
     Indication: Epilepsy
     Dosage: 500 MG, BID (1-0-1)
     Route: 065
  9. LEVETIRACETAM [Concomitant]
     Active Substance: LEVETIRACETAM
     Dosage: 750 MG, BID (1-0-1)
     Route: 065
     Dates: start: 202212
  10. LEVETIRACETAM [Concomitant]
     Active Substance: LEVETIRACETAM
     Dosage: 1000 MG, BID (1-0-1)
     Route: 065
  11. LEVETIRACETAM [Concomitant]
     Active Substance: LEVETIRACETAM
     Dosage: 1250 MG, BID (1-0-1)
     Route: 065
  12. LEVETIRACETAM [Concomitant]
     Active Substance: LEVETIRACETAM
     Dosage: 1000 MG, BID (1-0-1)
     Route: 065
  13. TRAZODONE [Concomitant]
     Active Substance: TRAZODONE HYDROCHLORIDE
     Indication: Product used for unknown indication
     Dosage: 150 MG, QD (0-0-1)
     Route: 065
  14. DIAZEPAM [Concomitant]
     Active Substance: DIAZEPAM
     Indication: Product used for unknown indication
     Dosage: UNK, PRN
     Route: 065
  15. CENOBAMATE [Concomitant]
     Active Substance: CENOBAMATE
     Indication: Epilepsy
     Dosage: UNK
     Route: 065
     Dates: start: 202305
  16. CENOBAMATE [Concomitant]
     Active Substance: CENOBAMATE
     Dosage: 50 MG, QD
     Route: 065
  17. CENOBAMATE [Concomitant]
     Active Substance: CENOBAMATE
     Dosage: 150 MG, QD
     Route: 065
  18. CENOBAMATE [Concomitant]
     Active Substance: CENOBAMATE
     Dosage: 200 MG, QD
     Route: 065
  19. CENOBAMATE [Concomitant]
     Active Substance: CENOBAMATE
     Dosage: 300 MG, QD
     Route: 065
  20. CENOBAMATE [Concomitant]
     Active Substance: CENOBAMATE
     Dosage: 350 MG, QD
     Route: 065
  21. BRIVARACETAM [Concomitant]
     Active Substance: BRIVARACETAM
     Indication: Epilepsy
     Dosage: 25 MG (1-0-2)
     Route: 065
  22. BRIVARACETAM [Concomitant]
     Active Substance: BRIVARACETAM
     Dosage: 25 MG (2-0-2)
     Route: 065
  23. BRIVARACETAM [Concomitant]
     Active Substance: BRIVARACETAM
     Dosage: 25 MG (1-0-2)
     Route: 065

REACTIONS (4)
  - Ataxia [Recovered/Resolved]
  - Balance disorder [Recovered/Resolved]
  - Diplopia [Recovered/Resolved]
  - Drug ineffective [Unknown]

NARRATIVE: CASE EVENT DATE: 20230612
